FAERS Safety Report 9055381 (Version 1)
Quarter: 2013Q1

REPORT INFORMATION
  Report Type: Spontaneous
  Country: US (occurrence: US)
  Receive Date: 20130206
  Receipt Date: 20130206
  Transmission Date: 20140127
  Serious: No
  Sender: FDA-Public Use
  Company Number: US-009507513-1301USA014134

PATIENT
  Age: 40 Year
  Sex: Male

DRUGS (1)
  1. SYLATRON [Suspect]
     Dosage: UNK
     Dates: start: 201205

REACTIONS (1)
  - Blood alkaline phosphatase increased [Unknown]
